FAERS Safety Report 4412400-4 (Version None)
Quarter: 2004Q2

REPORT INFORMATION
  Report Type: 
  Country: None (occurrence: None)
  Receive Date: 20040630
  Receipt Date: 20040402
  Transmission Date: 20050107
  Serious: No
  Sender: FDA-Public Use
  Company Number: 04P-163-0256518-00

PATIENT
  Age: 58 Year
  Sex: Female
  Weight: 81.6475 kg

DRUGS (6)
  1. HUMIRA [Suspect]
     Indication: RHEUMATOID ARTHRITIS
     Dosage: 40 MG, 1 IN 2 WK, PER ORAL
     Route: 048
     Dates: start: 20040315
  2. LANSOPRAZOLE [Concomitant]
  3. AMLODIPINE BESYLATE [Concomitant]
  4. VICODIN [Concomitant]
  5. ALLOPURINOL [Concomitant]
  6. IBUPROFEN [Concomitant]

REACTIONS (5)
  - INJECTION SITE ERYTHEMA [None]
  - INJECTION SITE PRURITUS [None]
  - INJECTION SITE STINGING [None]
  - OEDEMA PERIPHERAL [None]
  - UNEVALUABLE EVENT [None]
